FAERS Safety Report 22079047 (Version 4)
Quarter: 2023Q2

REPORT INFORMATION
  Report Type: Spontaneous
  Country: AR (occurrence: AR)
  Receive Date: 20230309
  Receipt Date: 20230511
  Transmission Date: 20230721
  Serious: Yes (Other)
  Sender: FDA-Public Use
  Company Number: AR-SA-SAC20230307001140

PATIENT
  Age: 55 Year
  Sex: Male

DRUGS (1)
  1. APIDRA [Suspect]
     Active Substance: INSULIN GLULISINE
     Indication: Diabetes mellitus
     Dosage: 4-8 UNITS
     Route: 065

REACTIONS (4)
  - Loss of consciousness [Unknown]
  - Hyperglycaemia [Unknown]
  - Device issue [Unknown]
  - Blood glucose decreased [Unknown]
